FAERS Safety Report 4753664-7 (Version None)
Quarter: 2005Q3

REPORT INFORMATION
  Report Type: 
  Country: None (occurrence: None)
  Receive Date: 20050826
  Receipt Date: 20050815
  Transmission Date: 20060218
  Serious: Yes (Disabling)
  Sender: FDA-Public Use
  Company Number: 2005GB01570

PATIENT
  Age: 49 Year
  Sex: Male

DRUGS (10)
  1. ATENOLOL [Suspect]
     Indication: HYPERTENSION
     Route: 048
     Dates: start: 20050711, end: 20050713
  2. PREDNISOLONE [Concomitant]
     Route: 065
  3. CYCLOSPORINE [Concomitant]
     Route: 065
     Dates: end: 20050707
  4. DOXAZOSIN [Concomitant]
     Route: 065
  5. RAMIPRIL [Concomitant]
     Route: 065
  6. FUROSEMIDE [Concomitant]
     Route: 065
  7. RANITIDINE HCL [Concomitant]
     Route: 065
  8. ATORVASTATIN [Concomitant]
     Route: 065
  9. ASPIRIN [Concomitant]
     Route: 065
  10. MYCOPHENOLATE MOFETIL [Concomitant]
     Route: 065
     Dates: start: 20050503

REACTIONS (3)
  - EYE SWELLING [None]
  - HYPERSENSITIVITY [None]
  - RASH PRURITIC [None]
